FAERS Safety Report 7098767-X (Version None)
Quarter: 2010Q4

REPORT INFORMATION
  Report Type: 
  Country: None (occurrence: None)
  Receive Date: 20101112
  Receipt Date: 20080620
  Transmission Date: 20110411
  Serious: No
  Sender: FDA-Public Use
  Company Number: US-KINGPHARMUSA00001-K200800411

PATIENT
  Age: 65 Year
  Sex: Female

DRUGS (1)
  1. LEVOXYL [Suspect]
     Indication: HYPOTHYROIDISM
     Dosage: 25 MCG, QD
     Route: 048

REACTIONS (5)
  - BURNING SENSATION [None]
  - DYSGEUSIA [None]
  - HEAD DISCOMFORT [None]
  - HEADACHE [None]
  - MEDICATION RESIDUE [None]
